FAERS Safety Report 20211657 (Version 1)
Quarter: 2021Q4

REPORT INFORMATION
  Report Type: Report from Study
  Country: US (occurrence: US)
  Receive Date: 20211221
  Receipt Date: 20211221
  Transmission Date: 20220304
  Serious: No
  Sender: FDA-Public Use
  Company Number: US-NOVARTISTESTPH-NVSC2021US292546

PATIENT
  Age: 83 Year
  Sex: Male

DRUGS (2)
  1. TABRECTA [Suspect]
     Active Substance: CAPMATINIB
     Indication: Lung carcinoma cell type unspecified stage 0
     Dosage: 300 MG, BID
     Route: 048
     Dates: start: 202106
  2. TABRECTA [Suspect]
     Active Substance: CAPMATINIB
     Indication: Metastasis

REACTIONS (1)
  - Fluid retention [Recovering/Resolving]

NARRATIVE: CASE EVENT DATE: 20211101
